FAERS Safety Report 12401221 (Version 1)
Quarter: 2016Q2

REPORT INFORMATION
  Report Type: Spontaneous
  Country: US (occurrence: None)
  Receive Date: 20160524
  Receipt Date: 20160524
  Transmission Date: 20160815
  Serious: Yes (Life-Threatening, Hospitalization)
  Sender: FDA-Public Use
  Company Number: None

PATIENT
  Age: 69 Year
  Sex: Male
  Weight: 94.5 kg

DRUGS (2)
  1. SPIRONOLACTONE. [Suspect]
     Active Substance: SPIRONOLACTONE
     Indication: CARDIAC FAILURE CONGESTIVE
     Route: 048
     Dates: start: 20160422
  2. FLECAINIDE [Suspect]
     Active Substance: FLECAINIDE
     Indication: ATRIAL FIBRILLATION
     Route: 048
     Dates: start: 20160422

REACTIONS (9)
  - Hyperkalaemia [None]
  - Bundle branch block right [None]
  - Trifascicular block [None]
  - International normalised ratio increased [None]
  - Acute kidney injury [None]
  - Toxicity to various agents [None]
  - Hypotension [None]
  - Drug interaction [None]
  - Bradycardia [None]

NARRATIVE: CASE EVENT DATE: 20160503
